FAERS Safety Report 8822278 (Version 1)
Quarter: 2012Q4

REPORT INFORMATION
  Report Type: 
  Country: US (occurrence: US)
  Receive Date: 20121003
  Receipt Date: 20121003
  Transmission Date: 20130627
  Serious: Yes (Other)
  Sender: FDA-Public Use
  Company Number: PHEH2012US018892

PATIENT
  Sex: Female

DRUGS (7)
  1. RECLAST [Suspect]
     Dosage: 5 mg, yearly
     Route: 042
     Dates: start: 2009
  2. RECLAST [Suspect]
     Dosage: 5 mg, yearly
     Route: 042
     Dates: start: 2010
  3. RECLAST [Suspect]
     Dosage: 5 mg, yearly
     Route: 042
     Dates: start: 201107
  4. METOPROLOL [Suspect]
     Dosage: 50 mg, BID
     Dates: start: 2010
  5. ANASTROZOLE [Concomitant]
     Dosage: 1 mg, QD
  6. ASPIRIN [Concomitant]
     Dosage: 325 mg, UNK
  7. ARMOUR THYROID [Concomitant]

REACTIONS (1)
  - Hernia [Unknown]
